FAERS Safety Report 18902217 (Version 1)
Quarter: 2021Q1

REPORT INFORMATION
  Report Type: Spontaneous
  Country: US (occurrence: US)
  Receive Date: 20210217
  Receipt Date: 20210217
  Transmission Date: 20210420
  Serious: Yes (Other)
  Sender: FDA-Public Use
  Company Number: US-NOVEN PHARMACEUTICALS, INC.-2020US009260

PATIENT
  Sex: Male
  Weight: 39 kg

DRUGS (2)
  1. DAYTRANA [Suspect]
     Active Substance: METHYLPHENIDATE
     Indication: ATTENTION DEFICIT HYPERACTIVITY DISORDER
     Dosage: 10MG/9 HOURS, 1 PATCH DAILY
     Route: 062
  2. DAYTRANA [Suspect]
     Active Substance: METHYLPHENIDATE
     Dosage: 10MG/9 HOURS, 1 PATCH DAILY
     Route: 062
     Dates: start: 2020

REACTIONS (5)
  - Device breakage [Recovered/Resolved]
  - Product administration error [Recovered/Resolved]
  - No adverse event [Unknown]
  - Device difficult to use [Recovered/Resolved]
  - Device adhesion issue [Recovered/Resolved]

NARRATIVE: CASE EVENT DATE: 2020
